FAERS Safety Report 4801646-9 (Version None)
Quarter: 2005Q4

REPORT INFORMATION
  Report Type: 
  Country: None (occurrence: None)
  Receive Date: 20051014
  Receipt Date: 20051014
  Transmission Date: 20060501
  Serious: Yes (Life-Threatening, Hospitalization)
  Sender: FDA-Public Use
  Company Number: None

PATIENT
  Age: 71 Year
  Sex: Male
  Weight: 94 kg

DRUGS (5)
  1. CARBOPLATIN [Suspect]
     Indication: BILE DUCT CANCER
     Dosage: 380MG IV Q3WEEK EARLIER
     Route: 042
     Dates: start: 20050926
  2. CARBOPLATIN [Suspect]
     Indication: NON-SMALL CELL LUNG CANCER
     Dosage: 380MG IV Q3WEEK EARLIER
     Route: 042
     Dates: start: 20050926
  3. GEMCITABINE 1000MG AND 200MG SDV, LILLY [Suspect]
     Indication: BILE DUCT CANCER
     Dosage: 1688MG IV Q3WEEK  EARLIER
     Route: 042
     Dates: start: 20050926
  4. GEMCITABINE 1000MG AND 200MG SDV, LILLY [Suspect]
     Indication: NON-SMALL CELL LUNG CANCER
     Dosage: 1688MG IV Q3WEEK  EARLIER
     Route: 042
     Dates: start: 20050926
  5. GEMCITABINE 1000MG AND 200MG SDV, LILLY [Suspect]

REACTIONS (6)
  - BLOOD PRESSURE DIASTOLIC DECREASED [None]
  - BLOOD PRESSURE SYSTOLIC DECREASED [None]
  - CARDIO-RESPIRATORY ARREST [None]
  - DYSPNOEA [None]
  - FLUSHING [None]
  - OXYGEN SATURATION DECREASED [None]
